FAERS Safety Report 6304468-5 (Version None)
Quarter: 2009Q3

REPORT INFORMATION
  Report Type: 
  Country: None (occurrence: None)
  Receive Date: 20090811
  Receipt Date: 20090722
  Transmission Date: 20100115
  Serious: Yes (Other)
  Sender: FDA-Public Use
  Company Number: PHHY2009FI30528

PATIENT
  Sex: Male

DRUGS (1)
  1. LEPONEX [Suspect]

REACTIONS (2)
  - NEUTROPHIL COUNT DECREASED [None]
  - PSYCHOTIC DISORDER [None]
